FAERS Safety Report 21128410 (Version 11)
Quarter: 2024Q2

REPORT INFORMATION
  Report Type: Spontaneous
  Country: US (occurrence: US)
  Receive Date: 20220725
  Receipt Date: 20240403
  Transmission Date: 20240716
  Serious: No
  Sender: FDA-Public Use
  Company Number: US-PFIZER INC-PV202200028723

PATIENT
  Age: 86 Year
  Sex: Female
  Weight: 57.15 kg

DRUGS (3)
  1. PREMARIN [Suspect]
     Active Substance: ESTROGENS, CONJUGATED
     Indication: Dysuria
     Dosage: 0.5 G, 3X/WEEK
     Route: 067
     Dates: end: 202211
  2. PREMARIN [Suspect]
     Active Substance: ESTROGENS, CONJUGATED
     Indication: Vaginal disorder
     Dosage: 0.5 MG QHS(ONCE A DAY AT BEDTIME) ONCE WKLY PER VAGINA
     Route: 067
  3. PREMARIN [Suspect]
     Active Substance: ESTROGENS, CONJUGATED
     Indication: Bladder disorder

REACTIONS (4)
  - Tremor [Unknown]
  - Body height decreased [Unknown]
  - Off label use [Unknown]
  - Drug effective for unapproved indication [Unknown]
